FAERS Safety Report 11913170 (Version 2)
Quarter: 2016Q1

REPORT INFORMATION
  Report Type: Report from Study
  Country: BR (occurrence: BR)
  Receive Date: 20160113
  Receipt Date: 20160325
  Transmission Date: 20160526
  Serious: Yes (Hospitalization, Other)
  Sender: FDA-Public Use
  Company Number: BR-ROCHE-1692725

PATIENT
  Sex: Female
  Weight: 52 kg

DRUGS (4)
  1. TRAMADOL. [Concomitant]
     Active Substance: TRAMADOL
     Route: 065
  2. ACTEMRA [Suspect]
     Active Substance: TOCILIZUMAB
     Indication: RHEUMATOID ARTHRITIS
     Dosage: MOST RECENT DOSE: 18/JUN/2015
     Route: 042
     Dates: start: 20140616
  3. LOSARTAN. [Concomitant]
     Active Substance: LOSARTAN
     Dosage: ONE TABLET IN THE MORNING AND AT NIGHT
     Route: 065
  4. METICORTEN [Concomitant]
     Active Substance: PREDNISONE
     Route: 065

REACTIONS (3)
  - Bone erosion [Unknown]
  - Arthropathy [Unknown]
  - Corneal disorder [Unknown]
